FAERS Safety Report 14632620 (Version 1)
Quarter: 2018Q1

REPORT INFORMATION
  Report Type: Spontaneous
  Country: RO (occurrence: RO)
  Receive Date: 20180313
  Receipt Date: 20180313
  Transmission Date: 20180509
  Serious: Yes (Hospitalization)
  Sender: FDA-Public Use
  Company Number: RO-BAYER-2018-042740

PATIENT
  Age: 41 Year
  Sex: Male

DRUGS (4)
  1. KOGENATE [Suspect]
     Active Substance: ANTIHEMOPHILIC FACTOR, HUMAN RECOMBINANT
     Indication: FACTOR VIII DEFICIENCY
     Dosage: 3 DF. TO TREAT LEFT FOOT HAEMARTHROSIS
     Route: 042
     Dates: start: 20171023, end: 20171026
  2. KOGENATE [Suspect]
     Active Substance: ANTIHEMOPHILIC FACTOR, HUMAN RECOMBINANT
     Indication: FACTOR VIII DEFICIENCY
     Dosage: HEAD INJURY PROPHYLAXIS
     Route: 042
     Dates: start: 20171009, end: 20171009
  3. KOGENATE [Suspect]
     Active Substance: ANTIHEMOPHILIC FACTOR, HUMAN RECOMBINANT
     Indication: FACTOR VIII DEFICIENCY
     Dosage: HEAD INJURY PROPHYLAXIS
     Route: 042
     Dates: start: 20171006, end: 20171006
  4. KOGENATE [Suspect]
     Active Substance: ANTIHEMOPHILIC FACTOR, HUMAN RECOMBINANT
     Indication: FACTOR VIII DEFICIENCY
     Dosage: TO TREAT LEFT ELBOW HAEMARTHROSIS
     Route: 042
     Dates: start: 20171101

REACTIONS (3)
  - Haemangioma [Not Recovered/Not Resolved]
  - Swelling [Not Recovered/Not Resolved]
  - Swelling face [Not Recovered/Not Resolved]
